FAERS Safety Report 19578225 (Version 2)
Quarter: 2021Q3

REPORT INFORMATION
  Report Type: Spontaneous
  Country: JP (occurrence: JP)
  Receive Date: 20210719
  Receipt Date: 20210908
  Transmission Date: 20211014
  Serious: Yes (Life-Threatening, Hospitalization)
  Sender: FDA-Public Use
  Company Number: JP-ELI_LILLY_AND_COMPANY-JP202107005022AA

PATIENT
  Age: 65 Year
  Sex: Female
  Weight: 50 kg

DRUGS (6)
  1. BAYASPIRIN [Suspect]
     Active Substance: ASPIRIN
     Indication: CARDIAC VALVE DISEASE
     Dosage: 100 MG, EACH MORNING
     Route: 048
     Dates: end: 20210630
  2. NEXIUM MUPS [ESOMEPRAZOLE MAGNESIUM] [Concomitant]
     Active Substance: ESOMEPRAZOLE MAGNESIUM
     Dosage: 20 MG, EACH MORNING
     Route: 048
  3. LETROZOLE. [Concomitant]
     Active Substance: LETROZOLE
     Indication: INVASIVE DUCTAL BREAST CARCINOMA
     Dosage: 1 DOSAGE FORM, EACH MORNING
     Route: 048
     Dates: start: 20210525
  4. THYRADIN S [Concomitant]
     Active Substance: LEVOTHYROXINE SODIUM
     Indication: AUTOIMMUNE THYROIDITIS
     Dosage: 75 UG, EACH MORNING
     Route: 048
  5. WARFARIN [Suspect]
     Active Substance: WARFARIN
     Indication: CARDIAC VALVE DISEASE
     Dosage: 4.5 MG, EACH MORNING
     Route: 048
     Dates: end: 20210630
  6. VERZENIO [Suspect]
     Active Substance: ABEMACICLIB
     Indication: INVASIVE DUCTAL BREAST CARCINOMA
     Dosage: 150 MG, BID
     Route: 048
     Dates: start: 20210618, end: 20210628

REACTIONS (2)
  - Melaena [Recovered/Resolved]
  - Anaemia [Recovered/Resolved]

NARRATIVE: CASE EVENT DATE: 20210625
